FAERS Safety Report 5099163-7 (Version None)
Quarter: 2006Q3

REPORT INFORMATION
  Report Type: 
  Country: None (occurrence: None)
  Receive Date: 20060728
  Receipt Date: 20060601
  Transmission Date: 20061208
  Serious: No
  Sender: FDA-Public Use
  Company Number: COT_0619_2006

PATIENT
  Age: 46 Year
  Sex: Female
  Weight: 63 kg

DRUGS (12)
  1. VENTAVIS [Suspect]
     Indication: PULMONARY HYPERTENSION
     Dosage: 5 MCG 6XD IH
     Dates: start: 20050415
  2. CELLCEPT [Concomitant]
  3. BENADRYL [Concomitant]
  4. FAMOTIDINE [Concomitant]
  5. PROGRAF [Concomitant]
  6. KLONOPIN [Concomitant]
  7. PREDNISONE TAB [Concomitant]
  8. ACETAMINOPHEN [Concomitant]
  9. LASIX [Concomitant]
  10. POTASSIUM CHLORIDE [Concomitant]
  11. IMODIUM [Concomitant]
  12. TUMS [Concomitant]

REACTIONS (2)
  - COUGH [None]
  - NASOPHARYNGITIS [None]
